FAERS Safety Report 16332905 (Version 2)
Quarter: 2019Q3

REPORT INFORMATION
  Report Type: Spontaneous
  Country: US (occurrence: US)
  Receive Date: 20190520
  Receipt Date: 20190814
  Transmission Date: 20191004
  Serious: Yes (Other)
  Sender: FDA-Public Use
  Company Number: US-PFIZER INC-2019212401

PATIENT
  Age: 79 Year
  Sex: Female

DRUGS (3)
  1. IBRANCE [Suspect]
     Active Substance: PALBOCICLIB
     Indication: BREAST CANCER FEMALE
     Dosage: 125 MG, CYCLIC (1 X A DAY 3 WEEKS THEN 1 WEEK OFF - NO MED)
     Dates: start: 20190623, end: 20190706
  2. FASLODEX [Concomitant]
     Active Substance: FULVESTRANT
     Indication: HORMONE THERAPY
     Dosage: 2 DF, MONTHLY
  3. XGEVA [Concomitant]
     Active Substance: DENOSUMAB
     Indication: BONE DISORDER
     Dosage: 120 MG, CYCLIC (EVERY 12 WEEKS)
     Dates: start: 20190716

REACTIONS (4)
  - Loss of consciousness [Unknown]
  - Pruritus [Unknown]
  - Rash [Recovered/Resolved]
  - Fatigue [Unknown]
